FAERS Safety Report 23196839 (Version 2)
Quarter: 2024Q1

REPORT INFORMATION
  Report Type: Spontaneous
  Country: CA (occurrence: CA)
  Receive Date: 20231117
  Receipt Date: 20240105
  Transmission Date: 20240410
  Serious: Yes (Other)
  Sender: FDA-Public Use
  Company Number: CA-PFIZER INC-202300362825

PATIENT
  Age: 8 Year
  Sex: Female

DRUGS (3)
  1. SOMATROPIN [Suspect]
     Active Substance: SOMATROPIN
     Indication: Short stature
     Dosage: 200 UG, 6X/WEEK
     Route: 058
     Dates: start: 20200914, end: 2022
  2. SOMATROPIN [Suspect]
     Active Substance: SOMATROPIN
     Dosage: 600 UG, 6X/WEEK
     Route: 058
     Dates: start: 2022
  3. PREDNISONE [Concomitant]
     Active Substance: PREDNISONE
     Dosage: UNKNOWN DOSE

REACTIONS (1)
  - Ear infection [Not Recovered/Not Resolved]
